FAERS Safety Report 7798122-0 (Version None)
Quarter: 2011Q4

REPORT INFORMATION
  Report Type: 
  Country: None (occurrence: None)
  Receive Date: 20111005
  Receipt Date: 20110926
  Transmission Date: 20120403
  Serious: No
  Sender: FDA-Public Use
  Company Number: US-B.I. PHARMACEUTICALS,INC./RIDGEFIELD-2011-BP-22909BP

PATIENT
  Sex: Male

DRUGS (10)
  1. CYMBALTA [Concomitant]
     Indication: ANXIETY
     Dosage: 60 MG
     Route: 048
     Dates: start: 20060101
  2. FUROSEMIDE [Concomitant]
     Indication: OEDEMA PERIPHERAL
     Dosage: 40 MG
     Route: 048
     Dates: start: 20100101
  3. JANUVIA [Concomitant]
     Indication: DIABETES MELLITUS
     Dosage: 100 MG
     Route: 048
     Dates: start: 20060101
  4. SPIRONOLACTONE [Concomitant]
     Indication: OEDEMA PERIPHERAL
     Dosage: 25 MG
     Route: 048
     Dates: start: 20100101
  5. METOPROLOL TARTRATE [Concomitant]
     Indication: ATRIAL FIBRILLATION
     Dosage: 50 MG
     Route: 048
     Dates: start: 20100101
  6. SIMVASTATIN [Concomitant]
     Indication: BLOOD CHOLESTEROL INCREASED
     Dosage: 40 MG
     Route: 048
     Dates: start: 20090101
  7. IPRATROPIUM BROMIDE [Concomitant]
     Indication: RHINORRHOEA
     Route: 055
     Dates: start: 20090101
  8. DIGOXIN [Concomitant]
     Indication: ATRIAL FIBRILLATION
     Dosage: 0.125 MG
     Route: 048
     Dates: start: 20100101
  9. PRADAXA [Suspect]
     Indication: ATRIAL FIBRILLATION
     Dosage: 300 MG
     Route: 048
     Dates: start: 20101101
  10. CYMBALTA [Concomitant]
     Indication: DEPRESSION

REACTIONS (2)
  - GASTROOESOPHAGEAL REFLUX DISEASE [None]
  - HOT FLUSH [None]
